FAERS Safety Report 16458572 (Version 2)
Quarter: 2020Q4

REPORT INFORMATION
  Report Type: Spontaneous
  Country: US (occurrence: US)
  Receive Date: 20190620
  Receipt Date: 20201218
  Transmission Date: 20210113
  Serious: No
  Sender: FDA-Public Use
  Company Number: US-THERAPEUTICSMD-2019TMD00503

PATIENT
  Age: 65 Year
  Sex: Female

DRUGS (2)
  1. IMVEXXY [Suspect]
     Active Substance: ESTRADIOL
     Dosage: UNK AT NIGHT
     Dates: start: 20190324
  2. UNSPECIFIED ANTIBIOTICS [Concomitant]
     Active Substance: UNSPECIFIED INGREDIENT

REACTIONS (5)
  - Product use complaint [Recovered/Resolved]
  - Vaginal discharge [Unknown]
  - Unevaluable event [Unknown]
  - Drug ineffective [Recovered/Resolved]
  - Vulvovaginal discomfort [Unknown]

NARRATIVE: CASE EVENT DATE: 201903
